FAERS Safety Report 7795348-7 (Version None)
Quarter: 2011Q3

REPORT INFORMATION
  Report Type: 
  Country: None (occurrence: None)
  Receive Date: 20110930
  Receipt Date: 20110923
  Transmission Date: 20111222
  Serious: Yes (Death, Life-Threatening, Hospitalization)
  Sender: FDA-Public Use
  Company Number: 124032

PATIENT
  Age: 76 Year
  Sex: Female

DRUGS (1)
  1. CLADRIBINE [Suspect]
     Indication: LYMPHOMA
     Dosage: 0.09MG/KG ON DAYS 2-6, EVERY 4 WEEKS

REACTIONS (7)
  - THERAPEUTIC RESPONSE DECREASED [None]
  - METASTASES TO LIVER [None]
  - METASTASES TO BONE MARROW [None]
  - BONE MARROW FAILURE [None]
  - NON-SMALL CELL LUNG CANCER [None]
  - HEPATIC NEOPLASM [None]
  - DISSEMINATED INTRAVASCULAR COAGULATION [None]
